FAERS Safety Report 8495900-X (Version None)
Quarter: 2012Q3

REPORT INFORMATION
  Report Type: 
  Country: None (occurrence: None)
  Receive Date: 20120709
  Receipt Date: 20120628
  Transmission Date: 20120928
  Serious: Yes (Other)
  Sender: FDA-Public Use
  Company Number: DE-ROCHE-743396

PATIENT
  Sex: Male
  Weight: 98 kg

DRUGS (16)
  1. CALCIUM CARBONATE [Concomitant]
     Indication: OSTEOPOROSIS PROPHYLAXIS
     Route: 048
  2. BICA NORM [Concomitant]
     Indication: METABOLIC ACIDOSIS
     Route: 048
  3. AMPHOTERICIN B [Concomitant]
     Route: 048
  4. TORSEMIDE [Concomitant]
     Indication: HYPERTENSION
     Route: 048
  5. METOPROLOL TARTRATE [Concomitant]
     Indication: HYPERTENSION
     Route: 048
  6. CIPROFLOXACIN [Concomitant]
     Indication: ANTIBIOTIC THERAPY
     Route: 048
  7. MIRCERA [Suspect]
     Indication: NEPHROGENIC ANAEMIA
     Route: 065
  8. CELLCEPT [Suspect]
     Indication: IMMUNOSUPPRESSION
     Route: 048
  9. DOXAZOSIN MESYLATE [Concomitant]
     Indication: HYPERTENSION
     Route: 048
  10. LERCANIDIPINE [Concomitant]
     Indication: HYPERTENSION
     Route: 048
  11. MOXONIDINE [Concomitant]
     Indication: HYPERTENSION
     Route: 048
  12. MINOXIDIL [Concomitant]
     Indication: HYPERTENSION
     Route: 048
  13. PANTOPRAZOLE [Concomitant]
     Indication: PROPHYLAXIS AGAINST GASTROINTESTINAL ULCER
     Route: 048
  14. PROGRAF [Concomitant]
     Indication: IMMUNOSUPPRESSION
     Route: 048
  15. PREDNISOLONE [Concomitant]
     Indication: IMMUNOSUPPRESSION
     Route: 048
  16. RAMIPRIL [Concomitant]
     Indication: HYPERTENSION
     Route: 048

REACTIONS (2)
  - UROSEPSIS [None]
  - KIDNEY TRANSPLANT REJECTION [None]
